FAERS Safety Report 12395201 (Version 1)
Quarter: 2016Q2

REPORT INFORMATION
  Report Type: Report from Study
  Country: BR (occurrence: BR)
  Receive Date: 20160523
  Receipt Date: 20160523
  Transmission Date: 20160815
  Serious: Yes (Other)
  Sender: FDA-Public Use
  Company Number: PHHY2016BR070637

PATIENT
  Age: 77 Year
  Sex: Male
  Weight: 74 kg

DRUGS (1)
  1. ACLASTA [Suspect]
     Active Substance: ZOLEDRONIC ACID
     Indication: OSTEOPOROSIS
     Dosage: 5 MG, Q12MO
     Route: 042
     Dates: start: 20140218

REACTIONS (9)
  - Glaucoma [Unknown]
  - Pallor [Unknown]
  - Fall [Unknown]
  - Weight decreased [Unknown]
  - Disorientation [Unknown]
  - Dementia Alzheimer^s type [Not Recovered/Not Resolved]
  - Tuberculosis [Unknown]
  - Diabetes mellitus [Unknown]
  - Cataract [Unknown]

NARRATIVE: CASE EVENT DATE: 2014
